FAERS Safety Report 8070220-6 (Version None)
Quarter: 2012Q1

REPORT INFORMATION
  Report Type: 
  Country: None (occurrence: None)
  Receive Date: 20120125
  Receipt Date: 20120116
  Transmission Date: 20120608
  Serious: Yes (Death)
  Sender: FDA-Public Use
  Company Number: US-ACTELION-A-US2011-54376

PATIENT

DRUGS (5)
  1. MULTAQ [Concomitant]
  2. CALCIUM CHANNEL BLOCKERS [Concomitant]
  3. ADCIRCA [Concomitant]
  4. TRACLEER [Suspect]
     Indication: PULMONARY HYPERTENSION
     Dosage: UNK MG, UNK
     Route: 048
     Dates: start: 20051129, end: 20110914
  5. COUMADIN [Concomitant]

REACTIONS (1)
  - PNEUMONIA [None]
